FAERS Safety Report 10902536 (Version 1)
Quarter: 2015Q1

REPORT INFORMATION
  Report Type: Spontaneous
  Country: PL (occurrence: PL)
  Receive Date: 20150310
  Receipt Date: 20150310
  Transmission Date: 20150721
  Serious: Yes (Hospitalization, Other)
  Sender: FDA-Public Use
  Company Number: PL-ACTAVIS-2015-04139

PATIENT
  Age: 24 Year
  Sex: Male

DRUGS (3)
  1. OPIPRAMOL [Suspect]
     Active Substance: OPIPRAMOL
     Indication: DRUG ABUSE
     Dosage: UNK
     Route: 058
  2. TRAMADOL (UNKNOWN) [Suspect]
     Active Substance: TRAMADOL
     Indication: DRUG ABUSE
     Dosage: UNK
     Route: 058
  3. CLONAZEPAM (UNKNOWN) [Suspect]
     Active Substance: CLONAZEPAM
     Indication: DRUG ABUSE
     Dosage: UNK
     Route: 058

REACTIONS (12)
  - Myalgia [Unknown]
  - Hypersomnia [Unknown]
  - Drug abuse [Unknown]
  - Serotonin syndrome [Unknown]
  - Body temperature fluctuation [Unknown]
  - Tachycardia [Unknown]
  - Weight decreased [Unknown]
  - Subcutaneous abscess [Unknown]
  - Fatigue [Unknown]
  - Hyperhidrosis [Unknown]
  - Insomnia [Unknown]
  - Agitation [Unknown]
